FAERS Safety Report 23473631 (Version 1)
Quarter: 2024Q1

REPORT INFORMATION
  Report Type: Spontaneous
  Country: TW (occurrence: TW)
  Receive Date: 20240203
  Receipt Date: 20240203
  Transmission Date: 20240409
  Serious: Yes (Hospitalization, Other)
  Sender: FDA-Public Use
  Company Number: TW-China IPSEN SC-2024-00786

PATIENT
  Age: 4 Year
  Sex: Male
  Weight: 10 kg

DRUGS (2)
  1. BOTULINUM TOXIN TYPE A [Suspect]
     Active Substance: BOTULINUM TOXIN TYPE A
     Indication: Opisthotonus
     Route: 065
     Dates: start: 200409, end: 200409
  2. BOTULINUM TOXIN TYPE A [Suspect]
     Active Substance: BOTULINUM TOXIN TYPE A
     Route: 065
     Dates: start: 200605, end: 200605

REACTIONS (3)
  - Respiratory failure [Unknown]
  - Gaze palsy [Unknown]
  - Pneumonia aspiration [Unknown]

NARRATIVE: CASE EVENT DATE: 20060101
